FAERS Safety Report 12824064 (Version 2)
Quarter: 2016Q4

REPORT INFORMATION
  Report Type: Spontaneous
  Country: US (occurrence: US)
  Receive Date: 20161006
  Receipt Date: 20161019
  Transmission Date: 20170207
  Serious: No
  Sender: FDA-Public Use
  Company Number: US-ACTELION-A-US2016-143210

PATIENT
  Age: 57 Year
  Sex: Female

DRUGS (1)
  1. OPSUMIT [Suspect]
     Active Substance: MACITENTAN
     Indication: PRODUCT USED FOR UNKNOWN INDICATION
     Dosage: 10 MG, QD
     Route: 048
     Dates: end: 20160924

REACTIONS (6)
  - Oedema [Recovered/Resolved]
  - Condition aggravated [Unknown]
  - Speech disorder [Unknown]
  - Wheezing [Recovering/Resolving]
  - Throat tightness [Unknown]
  - Dyspnoea [Recovering/Resolving]
